FAERS Safety Report 4316670-2 (Version None)
Quarter: 2004Q1

REPORT INFORMATION
  Report Type: 
  Country: None (occurrence: None)
  Receive Date: 20040311
  Receipt Date: 20040225
  Transmission Date: 20041129
  Serious: Yes (Hospitalization)
  Sender: FDA-Public Use
  Company Number: RTD20040001

PATIENT
  Age: 53 Year
  Sex: Male

DRUGS (3)
  1. RANITIDINE [Suspect]
     Dosage: 300 MG DAILY PO
     Route: 048
  2. ATORVASTATINE [Concomitant]
  3. CLOPIDOGREL [Concomitant]

REACTIONS (6)
  - ACUTE GENERALISED EXANTHEMATOUS PUSTULOSIS [None]
  - EPIDERMAL NECROSIS [None]
  - ERYTHEMA MULTIFORME [None]
  - OEDEMA PERIPHERAL [None]
  - SKIN DESQUAMATION [None]
  - SKIN TEST POSITIVE [None]
